FAERS Safety Report 10103326 (Version 2)
Quarter: 2014Q2

REPORT INFORMATION
  Report Type: Spontaneous
  Country: US (occurrence: US)
  Receive Date: 20140424
  Receipt Date: 20140424
  Transmission Date: 20141212
  Serious: No
  Sender: FDA-Public Use
  Company Number: US-BRISTOL-MYERS SQUIBB COMPANY-20265864

PATIENT
  Age: 96 Year
  Sex: Male

DRUGS (3)
  1. ELIQUIS [Suspect]
     Indication: CEREBROVASCULAR ACCIDENT PROPHYLAXIS
     Dates: start: 201402
  2. METOPROLOL [Concomitant]
  3. ASPIRIN [Concomitant]

REACTIONS (3)
  - Haemorrhage [Unknown]
  - Epistaxis [Unknown]
  - Blood urine present [Unknown]
